FAERS Safety Report 10693185 (Version 1)
Quarter: 2015Q1

REPORT INFORMATION
  Report Type: Spontaneous
  Country: GB (occurrence: GB)
  Receive Date: 20150106
  Receipt Date: 20150106
  Transmission Date: 20150720
  Serious: Yes (Other)
  Sender: FDA-Public Use
  Company Number: GB-ASTRAZENECA-2014SE99667

PATIENT
  Age: 41 Year
  Sex: Female
  Weight: 95.2 kg

DRUGS (1)
  1. ZOLADEX [Suspect]
     Active Substance: GOSERELIN ACETATE
     Indication: ENDOMETRIOSIS
     Route: 058
     Dates: start: 20141016, end: 20141218

REACTIONS (7)
  - Musculoskeletal stiffness [Unknown]
  - Joint swelling [Recovering/Resolving]
  - Sleep disorder [Not Recovered/Not Resolved]
  - Stress [Unknown]
  - Arthralgia [Recovering/Resolving]
  - Disturbance in attention [Unknown]
  - Headache [Not Recovered/Not Resolved]

NARRATIVE: CASE EVENT DATE: 20141120
